FAERS Safety Report 9479420 (Version 2)
Quarter: 2013Q3

REPORT INFORMATION
  Report Type: Spontaneous
  Country: US (occurrence: US)
  Receive Date: 20130827
  Receipt Date: 20130925
  Transmission Date: 20140515
  Serious: Yes (Hospitalization)
  Sender: FDA-Public Use
  Company Number: US-B.I. PHARMACEUTICALS,INC./RIDGEFIELD-2013-BI-25863BP

PATIENT
  Age: 53 Year
  Sex: Male
  Weight: 87 kg

DRUGS (17)
  1. COMBIVENT [Suspect]
     Indication: ASTHMA
     Dosage: STRENGTH: 18 MCG / 103 MCG;
     Route: 055
     Dates: start: 199610, end: 20130819
  2. COMBIVENT [Suspect]
     Indication: CHRONIC OBSTRUCTIVE PULMONARY DISEASE
  3. PLAVIX [Concomitant]
  4. IMDUR [Concomitant]
  5. LORTAB [Concomitant]
  6. FLEXERIL [Concomitant]
  7. FLOMAX [Concomitant]
  8. PREVACID [Concomitant]
  9. LEVOTHROID [Concomitant]
  10. COMBIVENT [Concomitant]
  11. MECLIZINE [Concomitant]
  12. SPIRIVA [Concomitant]
  13. CLONAZEPAM [Concomitant]
  14. AMBIEN [Concomitant]
  15. DIOVAN [Concomitant]
  16. INSULIN [Concomitant]
  17. GLUCOPHAGE [Concomitant]

REACTIONS (3)
  - Ischaemic stroke [Recovered/Resolved with Sequelae]
  - Carotid artery disease [Recovered/Resolved]
  - Off label use [Recovered/Resolved]
